FAERS Safety Report 6750014-1 (Version None)
Quarter: 2010Q2

REPORT INFORMATION
  Report Type: 
  Country: None (occurrence: None)
  Receive Date: 20100601
  Receipt Date: 20100526
  Transmission Date: 20101027
  Serious: Yes (Life-Threatening)
  Sender: FDA-Public Use
  Company Number: GXKR2010DE05811

PATIENT
  Age: 45 Year
  Sex: Male

DRUGS (3)
  1. CARBOPLATIN [Suspect]
     Indication: TESTIS CANCER
     Route: 065
  2. IFOSFAMIDE [Suspect]
     Indication: TESTIS CANCER
     Route: 065
  3. TAXOL [Suspect]
     Indication: TESTIS CANCER
     Route: 065

REACTIONS (2)
  - HYPERTENSIVE CRISIS [None]
  - PULMONARY OEDEMA [None]
